FAERS Safety Report 19202040 (Version 1)
Quarter: 2021Q2

REPORT INFORMATION
  Report Type: Spontaneous
  Country: CH (occurrence: CH)
  Receive Date: 20210430
  Receipt Date: 20210430
  Transmission Date: 20210717
  Serious: Yes (Other)
  Sender: FDA-Public Use
  Company Number: CH-SA-2021SA144328

PATIENT
  Age: 81 Year
  Sex: Male

DRUGS (1)
  1. PRADIF [Suspect]
     Active Substance: TAMSULOSIN HYDROCHLORIDE
     Indication: URINARY TRACT OBSTRUCTION
     Dosage: UNK
     Dates: start: 202102

REACTIONS (1)
  - Blood pressure increased [Unknown]
